FAERS Safety Report 20072007 (Version 2)
Quarter: 2021Q4

REPORT INFORMATION
  Report Type: Report from Study
  Country: CA (occurrence: CA)
  Receive Date: 20211116
  Receipt Date: 20211208
  Transmission Date: 20220303
  Serious: Yes (Hospitalization, Other)
  Sender: FDA-Public Use
  Company Number: CA-ABBVIE-21K-028-4160362-00

PATIENT
  Sex: Female

DRUGS (1)
  1. GLECAPREVIR\PIBRENTASVIR [Suspect]
     Active Substance: GLECAPREVIR\PIBRENTASVIR
     Indication: Chronic hepatitis C
     Route: 048
     Dates: start: 20210923, end: 2021

REACTIONS (9)
  - Intestinal obstruction [Unknown]
  - Renal impairment [Unknown]
  - Vomiting [Unknown]
  - Suture related complication [Unknown]
  - Hypertension [Unknown]
  - Malaise [Unknown]
  - Pain [Unknown]
  - Anuria [Unknown]
  - Fluid intake reduced [Unknown]

NARRATIVE: CASE EVENT DATE: 20210101
